FAERS Safety Report 4563566-7 (Version None)
Quarter: 2005Q1

REPORT INFORMATION
  Report Type: 
  Country: None (occurrence: None)
  Receive Date: 20050128
  Receipt Date: 20040930
  Transmission Date: 20050727
  Serious: No
  Sender: FDA-Public Use
  Company Number: US-GLAXOSMITHKLINE-A0528271A

PATIENT
  Sex: Female

DRUGS (1)
  1. WELLBUTRIN [Suspect]
     Dosage: 150MG UNKNOWN
     Route: 048

REACTIONS (3)
  - ANGER [None]
  - DEPRESSION [None]
  - INSOMNIA [None]
